FAERS Safety Report 19051935 (Version 3)
Quarter: 2021Q3

REPORT INFORMATION
  Report Type: Spontaneous
  Country: US (occurrence: US)
  Receive Date: 20210324
  Receipt Date: 20210727
  Transmission Date: 20211014
  Serious: Yes (Other)
  Sender: FDA-Public Use
  Company Number: US-NOVOPROD-797082

PATIENT
  Age: 67 Year
  Sex: Male

DRUGS (12)
  1. ALIROCUMAB [Suspect]
     Active Substance: ALIROCUMAB
     Indication: ARTERIOSCLEROSIS
     Dosage: 75 MG EVERY OTHER WEEK FOR 2 MONTHS
     Route: 058
     Dates: start: 20180316
  2. CENTRUM BALANCE [Concomitant]
     Indication: PRODUCT USED FOR UNKNOWN INDICATION
     Dosage: UNK
  3. NIACIN. [Concomitant]
     Active Substance: NIACIN
     Indication: PRODUCT USED FOR UNKNOWN INDICATION
     Dosage: 1500 MG, QD
  4. ACETAMINOPHEN. [Concomitant]
     Active Substance: ACETAMINOPHEN
     Indication: PRODUCT USED FOR UNKNOWN INDICATION
     Dosage: 500 MG
  5. LINUM USITATISSIMUM OIL [Concomitant]
     Indication: PRODUCT USED FOR UNKNOWN INDICATION
     Dosage: 1000 MG, QD
  6. CARVEDILOL. [Concomitant]
     Active Substance: CARVEDILOL
     Indication: PRODUCT USED FOR UNKNOWN INDICATION
     Dosage: 3.125 MG, BID
  7. VICTOZA [Suspect]
     Active Substance: LIRAGLUTIDE
     Indication: TYPE 2 DIABETES MELLITUS
     Dosage: 0.6 MG, QD
     Route: 058
     Dates: start: 20161215
  8. ALIROCUMAB [Suspect]
     Active Substance: ALIROCUMAB
     Indication: BLOOD CHOLESTEROL
  9. OMEGA?3 NOS [Concomitant]
     Active Substance: OMEGA-3 FATTY ACIDS
     Indication: PRODUCT USED FOR UNKNOWN INDICATION
     Dosage: UNK
  10. CINNAMOMUM CASSIA [Concomitant]
     Indication: PRODUCT USED FOR UNKNOWN INDICATION
     Dosage: 500 MG, QD
  11. ASPIRIN [ACETYLSALICYLIC ACID] [Concomitant]
     Active Substance: ASPIRIN
     Indication: PRODUCT USED FOR UNKNOWN INDICATION
     Dosage: 325 MG, QD
  12. GARLIC [ALLIUM SATIVUM] [Concomitant]
     Active Substance: GARLIC
     Indication: PRODUCT USED FOR UNKNOWN INDICATION
     Dosage: 200 MG, QD

REACTIONS (30)
  - Abdominal distension [Recovered/Resolved]
  - Cataract [Recovered/Resolved]
  - Tinea pedis [Recovered/Resolved]
  - Diabetic complication [Not Recovered/Not Resolved]
  - Overweight [Unknown]
  - Abdominal discomfort [Not Recovered/Not Resolved]
  - Diarrhoea [Not Recovered/Not Resolved]
  - Blood glucose increased [Recovered/Resolved]
  - Glycosylated haemoglobin increased [Recovered/Resolved]
  - Pulmonary hypertension [Recovered/Resolved]
  - Blood creatine phosphokinase increased [Recovered/Resolved]
  - Constipation [Recovered/Resolved]
  - Off label use [Unknown]
  - Condition aggravated [Recovered/Resolved]
  - Chills [Recovered/Resolved]
  - Vasomotor rhinitis [Recovered/Resolved]
  - Pulmonary mass [Not Recovered/Not Resolved]
  - Bone pain [Unknown]
  - Seborrhoeic keratosis [Unknown]
  - Gastrointestinal pain [Recovered/Resolved]
  - Myalgia [Recovering/Resolving]
  - Abdominal discomfort [Unknown]
  - Frequent bowel movements [Not Recovered/Not Resolved]
  - Onychomycosis [Recovered/Resolved]
  - Periarthritis [Recovering/Resolving]
  - Intervertebral disc degeneration [Recovering/Resolving]
  - Radiculopathy [Recovering/Resolving]
  - Back pain [Recovering/Resolving]
  - Abdominal pain [Not Recovered/Not Resolved]
  - Condition aggravated [Unknown]

NARRATIVE: CASE EVENT DATE: 2018
